FAERS Safety Report 10749970 (Version 1)
Quarter: 2015Q1

REPORT INFORMATION
  Report Type: Spontaneous
  Country: US (occurrence: US)
  Receive Date: 20150129
  Receipt Date: 20150129
  Transmission Date: 20150721
  Serious: No
  Sender: FDA-Public Use
  Company Number: US-009507513-1501USA008452

PATIENT
  Age: 17 Year
  Sex: Female

DRUGS (3)
  1. NEXPLANON [Suspect]
     Active Substance: ETONOGESTREL
     Indication: MENORRHAGIA
  2. NEXPLANON [Suspect]
     Active Substance: ETONOGESTREL
     Indication: MENSTRUATION IRREGULAR
     Dosage: 1 ROD, EVERY 3 YEARS
     Route: 059
     Dates: start: 20140727
  3. NEXPLANON [Suspect]
     Active Substance: ETONOGESTREL
     Indication: PAIN

REACTIONS (3)
  - Abdominal pain [Unknown]
  - Menorrhagia [Unknown]
  - Drug administration error [Unknown]

NARRATIVE: CASE EVENT DATE: 201408
